FAERS Safety Report 24424120 (Version 1)
Quarter: 2024Q4

REPORT INFORMATION
  Report Type: Report from Study
  Country: US (occurrence: US)
  Receive Date: 20241010
  Receipt Date: 20241010
  Transmission Date: 20250115
  Serious: Yes (Other)
  Sender: ABBVIE
  Company Number: US-ABBVIE-5955845

PATIENT
  Sex: Male

DRUGS (3)
  1. SKYRIZI [Suspect]
     Active Substance: RISANKIZUMAB-RZAA
     Indication: Psoriasis
     Dosage: DOSAGE: 150 MG/ML WEEK 0?FORM STRENGTH: 150MG/ML
     Route: 058
     Dates: start: 20240816, end: 20240816
  2. SKYRIZI [Suspect]
     Active Substance: RISANKIZUMAB-RZAA
     Indication: Psoriatic arthropathy
     Dosage: DOSAGE: 150 MG/ML WEEK 4?FORM STRENGTH: 150MG/ML
     Route: 058
     Dates: start: 20240913, end: 20240913
  3. BIMZELX [Concomitant]
     Active Substance: BIMEKIZUMAB-BKZX
     Indication: Product used for unknown indication
     Route: 065

REACTIONS (2)
  - Dental implantation [Unknown]
  - Meniere^s disease [Unknown]

NARRATIVE: CASE EVENT DATE: 20240101
